FAERS Safety Report 5455059-X (Version None)
Quarter: 2007Q3

REPORT INFORMATION
  Report Type: 
  Country: None (occurrence: None)
  Receive Date: 20070913
  Receipt Date: 20070830
  Transmission Date: 20080115
  Serious: Yes (Death, Hospitalization)
  Sender: FDA-Public Use
  Company Number: DSJ-2007-05608

PATIENT
  Age: 74 Year
  Sex: Female
  Weight: 45 kg

DRUGS (4)
  1. PANALDINE (TICLOPIDINE HYDROCHLORIDE) (TABLET) (TICLOPIDINE HYDROCHLOR [Suspect]
     Indication: RUPTURED CEREBRAL ANEURYSM
     Dosage: 200 MG (100 MG, 2 IN 1 D), PER ORAL
     Route: 048
     Dates: start: 20070513, end: 20070622
  2. OLMESARTAN MEDOXOMIL [Suspect]
     Indication: HYPERTENSION
     Dosage: 20 MG (20 MG, 1 IN 1 D), PER ORAL
     Route: 048
     Dates: start: 20070619, end: 20070622
  3. MUCOSTA (REBAMIPIDE) (REBAMIPIDE) [Concomitant]
  4. NORVASC [Concomitant]

REACTIONS (12)
  - COMA HEPATIC [None]
  - CONVULSION [None]
  - ESCHERICHIA SEPSIS [None]
  - GASTRIC ULCER HAEMORRHAGE [None]
  - GASTROINTESTINAL HAEMORRHAGE [None]
  - HAEMATEMESIS [None]
  - HEPATIC FAILURE [None]
  - HEPATITIS FULMINANT [None]
  - HEPATORENAL SYNDROME [None]
  - MELAENA [None]
  - PRURITUS [None]
  - RASH [None]
